FAERS Safety Report 23947139 (Version 1)
Quarter: 2024Q2

REPORT INFORMATION
  Report Type: Spontaneous
  Country: CN (occurrence: CN)
  Receive Date: 20240606
  Receipt Date: 20240606
  Transmission Date: 20240716
  Serious: Yes (Life-Threatening, Hospitalization)
  Sender: FDA-Public Use
  Company Number: CN-Merck Healthcare KGaA-2024030144

PATIENT
  Age: 54 Year
  Sex: Male
  Weight: 62 kg

DRUGS (3)
  1. ERBITUX [Suspect]
     Active Substance: CETUXIMAB
     Indication: Gingival cancer
     Dosage: 900 MG, UNKNOWN
     Route: 041
     Dates: start: 20240511, end: 20240511
  2. PACLITAXEL [Suspect]
     Active Substance: PACLITAXEL
     Indication: Gingival cancer
     Dosage: 360 MG, DAILY
     Route: 041
     Dates: start: 20240511, end: 20240511
  3. CARBOPLATIN [Suspect]
     Active Substance: CARBOPLATIN
     Indication: Gingival cancer
     Dosage: 480 MG, DAILY
     Route: 041
     Dates: start: 20240511, end: 20240511

REACTIONS (1)
  - Myelosuppression [Recovering/Resolving]

NARRATIVE: CASE EVENT DATE: 20240518
